FAERS Safety Report 8014451-X (Version None)
Quarter: 2011Q4

REPORT INFORMATION
  Report Type: 
  Country: None (occurrence: None)
  Receive Date: 20111229
  Receipt Date: 20111222
  Transmission Date: 20120403
  Serious: Yes (Hospitalization)
  Sender: FDA-Public Use
  Company Number: PHHY2011PL73071

PATIENT
  Age: 30 Year
  Sex: Male

DRUGS (2)
  1. RIBAVIRIN [Suspect]
     Indication: HEPATITIS C
     Dosage: 1200 MG, UNK
     Dates: start: 20090101
  2. PEGINTERFERON ALFA-2A [Suspect]
     Indication: HEPATITIS C
     Dosage: 135 UG, QW
     Dates: start: 20090101

REACTIONS (13)
  - HYPERHOMOCYSTEINAEMIA [None]
  - COUGH [None]
  - ASTHENIA [None]
  - BLOOD FIBRINOGEN INCREASED [None]
  - TRICUSPID VALVE INCOMPETENCE [None]
  - DYSPNOEA [None]
  - PULMONARY EMBOLISM [None]
  - CHEST PAIN [None]
  - ACTIVATED PROTEIN C RESISTANCE [None]
  - ENDOCARDITIS NONINFECTIVE [None]
  - PYREXIA [None]
  - GENERAL PHYSICAL HEALTH DETERIORATION [None]
  - PULMONARY VALVE INCOMPETENCE [None]
